FAERS Safety Report 9760303 (Version 1)
Quarter: 2013Q4

REPORT INFORMATION
  Report Type: Spontaneous
  Country: US (occurrence: US)
  Receive Date: 20131216
  Receipt Date: 20131216
  Transmission Date: 20140711
  Serious: No
  Sender: FDA-Public Use
  Company Number: US-GILEAD-2010-0029227

PATIENT
  Sex: Female
  Weight: 104.78 kg

DRUGS (15)
  1. LETAIRIS [Suspect]
     Indication: PULMONARY ARTERIAL HYPERTENSION
     Route: 048
     Dates: start: 20100308
  2. SPIRONOLACTONE [Concomitant]
  3. COZAAR [Concomitant]
  4. PEPCID [Concomitant]
  5. PROAIR HFA [Concomitant]
  6. HUMALOG [Concomitant]
  7. CLONIDINE HCL [Concomitant]
  8. PRINIVIL [Concomitant]
  9. XALATAN [Concomitant]
  10. ALPHAGAN [Concomitant]
  11. LASIX [Concomitant]
  12. SYNTHROID [Concomitant]
  13. LANTUS [Concomitant]
  14. KLOR-CON [Concomitant]
  15. SPIRIVA [Concomitant]

REACTIONS (1)
  - Malaise [Unknown]
